FAERS Safety Report 16332637 (Version 1)
Quarter: 2019Q2

REPORT INFORMATION
  Report Type: Spontaneous
  Country: US (occurrence: US)
  Receive Date: 20190520
  Receipt Date: 20190520
  Transmission Date: 20190711
  Serious: No
  Sender: FDA-Public Use
  Company Number: US-PFIZER INC-2019212392

PATIENT
  Age: 61 Year
  Sex: Male
  Weight: 149.6 kg

DRUGS (1)
  1. GABAPENTIN. [Suspect]
     Active Substance: GABAPENTIN
     Dosage: 1800 MG, 2X/DAY (NINE 200MG CAPSULES IN THE MORNING AND NINE 200MG CAPSULES AT NIGHT)
     Dates: start: 201902, end: 201904

REACTIONS (7)
  - Pain [Unknown]
  - Muscle twitching [Recovered/Resolved]
  - Product use issue [Unknown]
  - Expired product administered [Unknown]
  - Eye movement disorder [Recovered/Resolved]
  - Drug ineffective [Unknown]
  - Off label use [Unknown]
